FAERS Safety Report 9018146 (Version 1)
Quarter: 2013Q1

REPORT INFORMATION
  Report Type: Spontaneous
  Country: US (occurrence: None)
  Receive Date: 20130111
  Receipt Date: 20130111
  Transmission Date: 20140127
  Serious: No
  Sender: FDA-Public Use
  Company Number: None

PATIENT
  Age: 3 Year
  Sex: Male

DRUGS (1)
  1. SINGULAIR [Suspect]

REACTIONS (5)
  - Nausea [None]
  - Vomiting [None]
  - Product taste abnormal [None]
  - Product substitution issue [None]
  - Product quality issue [None]
